FAERS Safety Report 16073852 (Version 1)
Quarter: 2019Q1

REPORT INFORMATION
  Report Type: Spontaneous
  Country: PT (occurrence: ES)
  Receive Date: 20190314
  Receipt Date: 20190314
  Transmission Date: 20190418
  Serious: Yes (Other)
  Sender: FDA-Public Use
  Company Number: PT-SUNOVION-2019SUN001066

PATIENT

DRUGS (6)
  1. FYCOMPA [Concomitant]
     Active Substance: PERAMPANEL
  2. ZEBINIX [Suspect]
     Active Substance: ESLICARBAZEPINE ACETATE
     Dosage: 400 MG IN THE MORNING, 1200 MG AT NIGHT
     Route: 065
     Dates: start: 2017, end: 201902
  3. LUMINAL [Concomitant]
     Active Substance: PHENOBARBITAL SODIUM
  4. ZEBINIX [Suspect]
     Active Substance: ESLICARBAZEPINE ACETATE
     Indication: PRODUCT USED FOR UNKNOWN INDICATION
     Dosage: UNK
     Route: 065
     Dates: start: 2017
  5. RIVOTRIL [Concomitant]
     Active Substance: CLONAZEPAM
  6. ZEBINIX [Suspect]
     Active Substance: ESLICARBAZEPINE ACETATE
     Dosage: 400 MG IN THE MORNING, 1000 MG AT NIGHT
     Route: 065
     Dates: start: 20190210

REACTIONS (4)
  - Eosinophilia [Not Recovered/Not Resolved]
  - Off label use [Unknown]
  - Petit mal epilepsy [Not Recovered/Not Resolved]
  - Overdose [Unknown]

NARRATIVE: CASE EVENT DATE: 2019
